FAERS Safety Report 7590370-8 (Version None)
Quarter: 2011Q2

REPORT INFORMATION
  Report Type: 
  Country: None (occurrence: None)
  Receive Date: 20110603
  Receipt Date: 20110317
  Transmission Date: 20111010
  Serious: No
  Sender: FDA-Public Use
  Company Number: 2011SP012241

PATIENT
  Age: 56 Year
  Sex: Female

DRUGS (1)
  1. SAPHRIS [Suspect]
     Indication: DEPRESSED MOOD
     Dosage: 10 MG;BID;SL
     Route: 060
     Dates: start: 20100701, end: 20110314

REACTIONS (5)
  - HEADACHE [None]
  - HYPOAESTHESIA [None]
  - PARAESTHESIA [None]
  - WEIGHT INCREASED [None]
  - LOCAL SWELLING [None]
